FAERS Safety Report 9600076 (Version 1)
Quarter: 2013Q4

REPORT INFORMATION
  Report Type: Spontaneous
  Country: US (occurrence: US)
  Receive Date: 20131004
  Receipt Date: 20131004
  Transmission Date: 20140711
  Serious: No
  Sender: FDA-Public Use
  Company Number: US-AMGEN-USASP2013032418

PATIENT
  Age: 33 Year
  Sex: Female

DRUGS (3)
  1. ENBREL [Suspect]
     Indication: RHEUMATOID ARTHRITIS
     Dosage: 50 MG, QWK
     Dates: start: 20121215
  2. METHOTREXATE [Concomitant]
     Dosage: 17.5 UNK, UNK
  3. PLAQUENIL                          /00072602/ [Concomitant]
     Dosage: 200 UNK, UNK

REACTIONS (3)
  - Sinusitis [Recovered/Resolved]
  - Vulvovaginal mycotic infection [Recovered/Resolved]
  - Body tinea [Recovered/Resolved]
